FAERS Safety Report 4289909-X (Version None)
Quarter: 2004Q1

REPORT INFORMATION
  Report Type: 
  Country: None (occurrence: None)
  Receive Date: 20040206
  Receipt Date: 20040126
  Transmission Date: 20041129
  Serious: Yes (Death, Other)
  Sender: FDA-Public Use
  Company Number: 2004005046

PATIENT
  Age: 30 Month
  Sex: 0

DRUGS (1)
  1. ATARAX [Suspect]
     Indication: ILL-DEFINED DISORDER
     Dosage: 10 MG (ONCE), ORAL
     Route: 048

REACTIONS (3)
  - LUNG DISORDER [None]
  - MEDICATION ERROR [None]
  - VIRAL MYOCARDITIS [None]
